FAERS Safety Report 9856009 (Version 1)
Quarter: 2014Q1

REPORT INFORMATION
  Report Type: Spontaneous
  Country: US (occurrence: US)
  Receive Date: 20140130
  Receipt Date: 20140130
  Transmission Date: 20141002
  Serious: No
  Sender: FDA-Public Use
  Company Number: US-PFIZER INC-2014026261

PATIENT
  Sex: Female

DRUGS (6)
  1. PROCARDIA [Suspect]
     Dosage: UNK
  2. IBUPROFEN [Suspect]
     Dosage: UNK
  3. MORPHINE SULFATE [Suspect]
     Dosage: UNK
  4. CAPOTEN [Suspect]
     Dosage: UNK
  5. NORMODYNE [Suspect]
     Dosage: UNK
  6. ALDOMET [Suspect]
     Dosage: UNK

REACTIONS (1)
  - Drug hypersensitivity [Unknown]
